FAERS Safety Report 4754861-7 (Version None)
Quarter: 2005Q3

REPORT INFORMATION
  Report Type: 
  Country: None (occurrence: None)
  Receive Date: 20050825
  Receipt Date: 20050812
  Transmission Date: 20060218
  Serious: Yes (Death)
  Sender: FDA-Public Use
  Company Number: EM2005-0392

PATIENT
  Sex: 0

DRUGS (5)
  1. PROLEUKIN [Suspect]
     Indication: MALIGNANT MELANOMA
     Dosage: 9 MIU/M2, 5X/WEEK, SUBCUTANEOUS
     Route: 058
  2. CISPLATIN [Suspect]
     Indication: MALIGNANT MELANOMA
     Dosage: 20 MG/M2, 4X/WEEK, INTRAVENOUS
     Route: 042
  3. VINBLASTINE(VINBLASTINE) [Suspect]
     Indication: MALIGNANT MELANOMA
     Dosage: 1.6 MG/M2, 4X/WEEK, IV
     Route: 042
  4. DACARBAZINE [Suspect]
     Indication: MALIGNANT MELANOMA
     Dosage: 800 MG/M2, ONCE, IV
     Route: 042
  5. INTERFERON ALFA-2B(INTERFERON ALFA-2B) [Suspect]
     Indication: MALIGNANT MELANOMA
     Dosage: 5 MIU/M2, 5X/WEEK, SUBCUTANEOUS
     Route: 058

REACTIONS (3)
  - FEBRILE NEUTROPENIA [None]
  - NAUSEA [None]
  - VOMITING [None]
